FAERS Safety Report 7358059-8 (Version None)
Quarter: 2011Q1

REPORT INFORMATION
  Report Type: 
  Country: None (occurrence: None)
  Receive Date: 20110317
  Receipt Date: 20110217
  Transmission Date: 20110831
  Serious: No
  Sender: FDA-Public Use
  Company Number: US-B.I. PHARMACEUTICALS,INC./RIDGEFIELD-2011-BP-06028BP

PATIENT
  Sex: Female

DRUGS (3)
  1. MICARDIS [Suspect]
     Dosage: 40 MG
  2. SYNTHROID [Concomitant]
  3. PREVACID [Concomitant]

REACTIONS (4)
  - VIRAL INFECTION [None]
  - VISUAL IMPAIRMENT [None]
  - MALAISE [None]
  - CONFUSIONAL STATE [None]
